FAERS Safety Report 12488868 (Version 1)
Quarter: 2016Q2

REPORT INFORMATION
  Report Type: Spontaneous
  Country: ES (occurrence: ES)
  Receive Date: 20160622
  Receipt Date: 20160622
  Transmission Date: 20160815
  Serious: Yes (Death, Other)
  Sender: FDA-Public Use
  Company Number: ES-CELGENEUS-ESP-2016062323

PATIENT

DRUGS (1)
  1. POMALIDOMIDE [Suspect]
     Active Substance: POMALIDOMIDE
     Indication: PLASMA CELL MYELOMA
     Route: 048

REACTIONS (13)
  - Respiratory tract infection [Unknown]
  - Disease progression [Unknown]
  - Blood disorder [Unknown]
  - Thrombocytopenia [Unknown]
  - Sepsis [Unknown]
  - Pneumonia [Unknown]
  - Neuropathy peripheral [Unknown]
  - Cytomegalovirus infection [Unknown]
  - Death [Fatal]
  - Graft versus host disease [Unknown]
  - Cerebrovascular accident [Unknown]
  - Toxicity to various agents [Unknown]
  - Neutropenia [Unknown]
